FAERS Safety Report 4600494-2 (Version None)
Quarter: 2005Q1

REPORT INFORMATION
  Report Type: 
  Country: None (occurrence: None)
  Receive Date: 20050304
  Receipt Date: 20050219
  Transmission Date: 20050727
  Serious: Yes (Hospitalization, Other)
  Sender: FDA-Public Use
  Company Number: 2004098661

PATIENT
  Age: 76 Year
  Sex: Female
  Weight: 122.9248 kg

DRUGS (2)
  1. CELEBREX [Suspect]
     Indication: ARTHRITIS
     Dosage: 100 MG (100 MG, 1 IN 1 D), ORAL
     Route: 048
     Dates: start: 20000101
  2. ADALIMUMAB (ADALIMUMAB) [Concomitant]
     Indication: ARTHRITIS
     Dosage: 100 MCG 1 IN 1 WK)
     Dates: start: 20030101, end: 20041101

REACTIONS (6)
  - GASTROINTESTINAL CARCINOMA [None]
  - HAEMATOCHEZIA [None]
  - NAUSEA [None]
  - ORAL INTAKE REDUCED [None]
  - PAIN IN EXTREMITY [None]
  - RHEUMATOID ARTHRITIS [None]
